FAERS Safety Report 23798967 (Version 1)
Quarter: 2024Q2

REPORT INFORMATION
  Report Type: Spontaneous
  Country: US (occurrence: US)
  Receive Date: 20240430
  Receipt Date: 20240430
  Transmission Date: 20240716
  Serious: No
  Sender: FDA-Public Use
  Company Number: US-AMGEN-USASP2024084829

PATIENT

DRUGS (31)
  1. EVENITY [Suspect]
     Active Substance: ROMOSOZUMAB-AQQG
     Indication: Product used for unknown indication
     Dosage: 105 MG/1.17 ML
     Route: 065
  2. EVENITY [Suspect]
     Active Substance: ROMOSOZUMAB-AQQG
     Dosage: 105 MG/1.17 ML
     Route: 065
  3. EVENITY [Suspect]
     Active Substance: ROMOSOZUMAB-AQQG
     Dosage: 105 MG/1.17 ML
     Route: 065
  4. EVENITY [Suspect]
     Active Substance: ROMOSOZUMAB-AQQG
     Dosage: 105 MG/1.17 ML
     Route: 065
  5. EVENITY [Suspect]
     Active Substance: ROMOSOZUMAB-AQQG
     Dosage: 105 MG/1.17 ML
     Route: 065
  6. EVENITY [Suspect]
     Active Substance: ROMOSOZUMAB-AQQG
     Dosage: 105 MG/1.17 ML
     Route: 065
  7. EVENITY [Suspect]
     Active Substance: ROMOSOZUMAB-AQQG
     Dosage: 105 MG/1.17 ML
     Route: 065
  8. EVENITY [Suspect]
     Active Substance: ROMOSOZUMAB-AQQG
     Dosage: 105 MG/1.17 ML
     Route: 065
  9. EVENITY [Suspect]
     Active Substance: ROMOSOZUMAB-AQQG
     Dosage: 105 MG/1.17 ML
     Route: 065
  10. PROLIA [Suspect]
     Active Substance: DENOSUMAB
     Indication: Product used for unknown indication
     Dosage: 60 MG/ML
     Route: 065
  11. PROLIA [Suspect]
     Active Substance: DENOSUMAB
     Dosage: 60 MG/ML
     Route: 065
  12. PROLIA [Suspect]
     Active Substance: DENOSUMAB
     Dosage: 60 MG/ML
     Route: 065
  13. PROLIA [Suspect]
     Active Substance: DENOSUMAB
     Dosage: 60 MG/ML
     Route: 065
  14. PROLIA [Suspect]
     Active Substance: DENOSUMAB
     Dosage: 60 MG/ML
     Route: 065
  15. PROLIA [Suspect]
     Active Substance: DENOSUMAB
     Dosage: 60 MG/ML
     Route: 065
  16. PROLIA [Suspect]
     Active Substance: DENOSUMAB
     Dosage: 60 MG/ML
     Route: 065
  17. PROLIA [Suspect]
     Active Substance: DENOSUMAB
     Dosage: 60 MG/ML
     Route: 065
  18. PROLIA [Suspect]
     Active Substance: DENOSUMAB
     Dosage: 60 MG/ML
     Route: 065
  19. PROLIA [Suspect]
     Active Substance: DENOSUMAB
     Dosage: 60 MG/ML
     Route: 065
  20. PROLIA [Suspect]
     Active Substance: DENOSUMAB
     Dosage: 60 MG/ML
     Route: 065
  21. PROLIA [Suspect]
     Active Substance: DENOSUMAB
     Dosage: 60 MG/ML
     Route: 065
  22. PROLIA [Suspect]
     Active Substance: DENOSUMAB
     Dosage: 60 MG/ML
     Route: 065
  23. PROLIA [Suspect]
     Active Substance: DENOSUMAB
     Dosage: 60 MG/ML
     Route: 065
  24. PROLIA [Suspect]
     Active Substance: DENOSUMAB
     Dosage: 60 MG/ML
     Route: 065
  25. PROLIA [Suspect]
     Active Substance: DENOSUMAB
     Dosage: 60 MG/ML
     Route: 065
  26. PROLIA [Suspect]
     Active Substance: DENOSUMAB
     Dosage: 60 MG/ML
     Route: 065
  27. PROLIA [Suspect]
     Active Substance: DENOSUMAB
     Dosage: 60 MG/ML
     Route: 065
  28. PROLIA [Suspect]
     Active Substance: DENOSUMAB
     Dosage: 60 MG/ML
     Route: 065
  29. PROLIA [Suspect]
     Active Substance: DENOSUMAB
     Dosage: 60 MG/ML
     Route: 065
  30. PROLIA [Suspect]
     Active Substance: DENOSUMAB
     Dosage: 60 MG/ML
     Route: 065
  31. PROLIA [Suspect]
     Active Substance: DENOSUMAB
     Dosage: 60 MG/ML
     Route: 065

REACTIONS (2)
  - Product storage error [Unknown]
  - Circumstance or information capable of leading to medication error [Unknown]
